FAERS Safety Report 21602968 (Version 2)
Quarter: 2022Q4

REPORT INFORMATION
  Report Type: Spontaneous
  Country: US (occurrence: US)
  Receive Date: 20221116
  Receipt Date: 20221117
  Transmission Date: 20230113
  Serious: Yes (Life-Threatening, Hospitalization, Other)
  Sender: FDA-Public Use
  Company Number: US-MLMSERVICE-20221108-3888699-1

PATIENT
  Age: 2 Month
  Sex: Male

DRUGS (2)
  1. METHOTREXATE SODIUM [Suspect]
     Active Substance: METHOTREXATE SODIUM
     Dosage: FREQ:9 {TOTAL};0.4MG/KG FOR THREE CONSECUTIVE DAYS, (TOTAL OF 9 DOSES OF METHOTREXATE) ON DOL 30
  2. ALGLUCOSIDASE ALFA [Concomitant]
     Active Substance: ALGLUCOSIDASE ALFA
     Indication: Glycogen storage disease type II
     Dosage: 20 MG/KG, CYCLIC (2 WEEKS)

REACTIONS (3)
  - Anaemia [Unknown]
  - Condition aggravated [Unknown]
  - Cardiomegaly [Unknown]
